FAERS Safety Report 20545264 (Version 3)
Quarter: 2022Q2

REPORT INFORMATION
  Report Type: Spontaneous
  Country: US (occurrence: None)
  Receive Date: 20220303
  Receipt Date: 20220624
  Transmission Date: 20220721
  Serious: Yes (Death, Life-Threatening)
  Sender: FDA-Public Use
  Company Number: 2022A092868

PATIENT
  Age: 69 Year
  Sex: Male

DRUGS (1)
  1. EVUSHELD [Suspect]
     Active Substance: CILGAVIMAB\TIXAGEVIMAB
     Indication: COVID-19 prophylaxis
     Dosage: 150MG/150MG ONCE/SINGLE ADMINISTRATION
     Route: 030
     Dates: start: 20220207, end: 20220207

REACTIONS (4)
  - Haemolytic anaemia [Fatal]
  - Ventricular fibrillation [Fatal]
  - Acute cardiac event [Fatal]
  - Cardiac arrest [Fatal]

NARRATIVE: CASE EVENT DATE: 20220221
